FAERS Safety Report 5081846-6 (Version None)
Quarter: 2006Q3

REPORT INFORMATION
  Report Type: 
  Country: None (occurrence: None)
  Receive Date: 20060816
  Receipt Date: 20060809
  Transmission Date: 20061208
  Serious: Yes (Hospitalization)
  Sender: FDA-Public Use
  Company Number: 2006AP03708

PATIENT
  Age: 84 Year
  Sex: Male

DRUGS (5)
  1. ATACAND HCT [Suspect]
     Indication: ESSENTIAL HYPERTENSION
     Dosage: 16 MG + 12.5 MG
     Route: 048
     Dates: end: 20041202
  2. PRAVACHOL [Concomitant]
  3. LOVAN [Concomitant]
  4. STEMZINE [Concomitant]
  5. DIGOXIN [Concomitant]

REACTIONS (3)
  - CONFUSIONAL STATE [None]
  - FALL [None]
  - MENTAL IMPAIRMENT [None]
